FAERS Safety Report 7888351-X (Version None)
Quarter: 2011Q4

REPORT INFORMATION
  Report Type: 
  Country: None (occurrence: None)
  Receive Date: 20111101
  Receipt Date: 20111020
  Transmission Date: 20120403
  Serious: Yes (Hospitalization, Other)
  Sender: FDA-Public Use
  Company Number: AUR-APL-2011-05382

PATIENT
  Age: 81 Year
  Sex: Female

DRUGS (6)
  1. TORSEMIDE [Concomitant]
  2. OMEPRAZOLE [Concomitant]
  3. METFORMIN HCL [Suspect]
     Indication: PRODUCT USED FOR UNKNOWN INDICATION
     Dosage: 2550 MG (850 MG, 1 IN 8 HR)
  4. ATORVASTATIN [Concomitant]
  5. TELMISARTAN [Concomitant]
  6. CARVEDILOL [Concomitant]

REACTIONS (17)
  - DIARRHOEA HAEMORRHAGIC [None]
  - HAEMOGLOBIN DECREASED [None]
  - DIABETIC NEPHROPATHY [None]
  - HAEMODYNAMIC INSTABILITY [None]
  - RENAL FAILURE CHRONIC [None]
  - DISORIENTATION [None]
  - LACTIC ACIDOSIS [None]
  - METABOLIC ACIDOSIS [None]
  - DIARRHOEA [None]
  - ANURIA [None]
  - RENAL TUBULAR NECROSIS [None]
  - BRADYPHRENIA [None]
  - CARDIOMEGALY [None]
  - HAEMODIALYSIS [None]
  - HYPERLACTACIDAEMIA [None]
  - VOMITING [None]
  - FLUID OVERLOAD [None]
